FAERS Safety Report 4567663-1 (Version None)
Quarter: 2005Q1

REPORT INFORMATION
  Report Type: 
  Country: None (occurrence: None)
  Receive Date: 20050114
  Receipt Date: 20050114
  Transmission Date: 20050727
  Serious: Yes (Other)
  Sender: FDA-Public Use
  Company Number: None

PATIENT
  Age: 70 Year
  Sex: Male
  Weight: 62.5964 kg

DRUGS (2)
  1. WARFARIN 2.5 MG BARR LABS POMONA, NY 10970 [Suspect]
     Indication: ATRIAL FIBRILLATION
     Dosage: 2.5 MG PO ONE MWF ONE T, TH, S, S
     Route: 048
  2. WARFARIN 2.5 MG BARR LABS POMONA, NY 10970 [Suspect]
     Indication: CEREBROVASCULAR ACCIDENT
     Dosage: 2.5 MG PO ONE MWF ONE T, TH, S, S
     Route: 048

REACTIONS (2)
  - PRURITUS [None]
  - RASH MACULO-PAPULAR [None]
